FAERS Safety Report 7709868-4 (Version None)
Quarter: 2011Q3

REPORT INFORMATION
  Report Type: 
  Country: None (occurrence: None)
  Receive Date: 20110825
  Receipt Date: 20110816
  Transmission Date: 20111222
  Serious: Yes (Hospitalization)
  Sender: FDA-Public Use
  Company Number: DE-JNJFOC-20110807971

PATIENT
  Age: 38 Year
  Sex: Female

DRUGS (2)
  1. SIMPONI [Suspect]
     Indication: RHEUMATOID ARTHRITIS
     Route: 058
     Dates: start: 20100601
  2. SIMPONI [Suspect]
     Route: 058
     Dates: start: 20100501

REACTIONS (1)
  - PNEUMONIA [None]
